FAERS Safety Report 26126999 (Version 1)
Quarter: 2025Q4

REPORT INFORMATION
  Report Type: Spontaneous
  Country: US (occurrence: US)
  Receive Date: 20251205
  Receipt Date: 20251205
  Transmission Date: 20260118
  Serious: No
  Sender: PRIMUS PHARMACEUTICALS
  Company Number: US-PRIMUS-2025-US-021260

PATIENT
  Age: 45 Year
  Sex: Male

DRUGS (2)
  1. IMPOYZ [Suspect]
     Active Substance: CLOBETASOL PROPIONATE
     Indication: Psoriasis
     Dosage: APPLY A THIN LAYER TOPICALLY TO THE AFFECTED AREAS TWICE A DAY, RUB IN GENTLY AND COMPLETELY
     Route: 061
     Dates: start: 20250320
  2. BIMZELX [Concomitant]
     Active Substance: BIMEKIZUMAB-BKZX

REACTIONS (1)
  - Drug ineffective [Unknown]
